FAERS Safety Report 5413628-7 (Version None)
Quarter: 2007Q3

REPORT INFORMATION
  Report Type: 
  Country: None (occurrence: None)
  Receive Date: 20070814
  Receipt Date: 20070409
  Transmission Date: 20080115
  Serious: No
  Sender: FDA-Public Use
  Company Number: US-BRISTOL-MYERS SQUIBB COMPANY-13742598

PATIENT
  Age: 57 Year
  Sex: Male
  Weight: 118 kg

DRUGS (16)
  1. GLUCOVANCE [Suspect]
     Indication: DIABETES MELLITUS
     Dates: start: 20040101
  2. BETAPACE TABS [Concomitant]
  3. AVALIDE [Concomitant]
  4. TRICOR [Concomitant]
  5. DIGITEK [Concomitant]
  6. POTASSIUM SUPPLEMENTS [Concomitant]
  7. MULTI-VITAMIN [Concomitant]
  8. ACTOS [Concomitant]
  9. NORVASC [Concomitant]
  10. WARFARIN SODIUM [Concomitant]
  11. PLAVIX [Concomitant]
  12. FUROSEMIDE [Concomitant]
  13. VYTORIN [Concomitant]
  14. XANAX [Concomitant]
  15. ASPIRIN [Concomitant]
  16. LEVEMIR [Concomitant]

REACTIONS (2)
  - BLOOD GLUCOSE INCREASED [None]
  - INTERNATIONAL NORMALISED RATIO DECREASED [None]
